FAERS Safety Report 6072433-1 (Version None)
Quarter: 2009Q1

REPORT INFORMATION
  Report Type: 
  Country: None (occurrence: None)
  Receive Date: 20090210
  Receipt Date: 20090205
  Transmission Date: 20090719
  Serious: Yes (Hospitalization)
  Sender: FDA-Public Use
  Company Number: MX-ABBOTT-08P-107-0446424-00

PATIENT
  Sex: Male
  Weight: 55 kg

DRUGS (2)
  1. KALETRA [Suspect]
     Indication: HIV INFECTION
     Dosage: 3 CAPS TWICE DAILY (400/100MG BID)
     Route: 048
     Dates: start: 20040215, end: 20080313
  2. COMBIVIR [Concomitant]
     Indication: DRUG USE FOR UNKNOWN INDICATION

REACTIONS (1)
  - LIPODYSTROPHY ACQUIRED [None]
